FAERS Safety Report 9077500 (Version 2)
Quarter: 2013Q1

REPORT INFORMATION
  Report Type: Spontaneous
  Country: US (occurrence: US)
  Receive Date: 20130130
  Receipt Date: 20130321
  Transmission Date: 20140127
  Serious: Yes (Other)
  Sender: FDA-Public Use
  Company Number: US-BRISTOL-MYERS SQUIBB COMPANY-17309162

PATIENT
  Age: 57 Year
  Sex: Female
  Weight: 57.14 kg

DRUGS (1)
  1. ORENCIA [Suspect]
     Indication: RHEUMATOID ARTHRITIS
     Dosage: LAST INF:01MAR2013
     Route: 042
     Dates: start: 201211

REACTIONS (2)
  - Hysterectomy [Unknown]
  - Drug ineffective [Unknown]
